FAERS Safety Report 8504834-3 (Version None)
Quarter: 2012Q3

REPORT INFORMATION
  Report Type: 
  Country: None (occurrence: None)
  Receive Date: 20120712
  Receipt Date: 20120703
  Transmission Date: 20120928
  Serious: Yes (Other)
  Sender: FDA-Public Use
  Company Number: ES-PAR PHARMACEUTICAL, INC-2012SCPR004488

PATIENT

DRUGS (2)
  1. LEVETIRACETAM [Suspect]
     Dosage: 53 MG/KG, QD
     Route: 065
  2. LEVETIRACETAM [Suspect]
     Indication: PARTIAL SEIZURES
     Dosage: 15 MG/KG, / DAY
     Route: 065

REACTIONS (7)
  - STEREOTYPY [None]
  - VOMITING [None]
  - DYSPHEMIA [None]
  - ABNORMAL BEHAVIOUR [None]
  - CONDITION AGGRAVATED [None]
  - AUTISM [None]
  - HEADACHE [None]
